FAERS Safety Report 6078195-6 (Version None)
Quarter: 2009Q1

REPORT INFORMATION
  Report Type: 
  Country: None (occurrence: None)
  Receive Date: 20090213
  Receipt Date: 20090206
  Transmission Date: 20090719
  Serious: Yes (Other)
  Sender: FDA-Public Use
  Company Number: PHBS2009IT00778

PATIENT
  Age: 50 Year
  Sex: Male

DRUGS (6)
  1. NEORAL [Suspect]
     Indication: RENAL TRANSPLANT
     Dosage: 75 MG, BID
  2. NEORAL [Suspect]
     Dosage: 100 MG/DAY
  3. NEORAL [Suspect]
     Dosage: 150 MG/DAY
  4. METHYLPREDNISOLONE 4MG TAB [Concomitant]
     Dosage: 4 MG/DAY
  5. ATENOLOL [Concomitant]
  6. AMLODIPINE [Concomitant]

REACTIONS (17)
  - ABDOMINAL PAIN [None]
  - ABDOMINAL RIGIDITY [None]
  - ANAEMIA [None]
  - BLOOD AMYLASE INCREASED [None]
  - COLITIS ULCERATIVE [None]
  - CYST [None]
  - GASTRITIS ATROPHIC [None]
  - HEPATIC ECHINOCOCCIASIS [None]
  - HEPATIC ENZYME INCREASED [None]
  - HEPATITIS C ANTIBODY POSITIVE [None]
  - HIATUS HERNIA [None]
  - HYPERBILIRUBINAEMIA [None]
  - JAUNDICE [None]
  - LEUKOCYTOSIS [None]
  - OEDEMA [None]
  - PYREXIA [None]
  - THROMBOCYTHAEMIA [None]
